FAERS Safety Report 18035469 (Version 1)
Quarter: 2020Q3

REPORT INFORMATION
  Report Type: Spontaneous
  Country: US (occurrence: US)
  Receive Date: 20200715
  Receipt Date: 20200715
  Transmission Date: 20201103
  Serious: No
  Sender: FDA-Public Use
  Company Number: None

PATIENT

DRUGS (2)
  1. VERAPAMIL HCL [Suspect]
     Active Substance: VERAPAMIL HYDROCHLORIDE
     Dosage: ?          OTHER DOSE:5 MG 2 ML;?
     Route: 042
  2. NALOXONE HCL [Suspect]
     Active Substance: NALOXONE HYDROCHLORIDE
     Route: 042

REACTIONS (4)
  - Product label confusion [None]
  - Product storage error [None]
  - Wrong drug [None]
  - Circumstance or information capable of leading to medication error [None]
